FAERS Safety Report 10063360 (Version 1)
Quarter: 2014Q2

REPORT INFORMATION
  Report Type: Spontaneous
  Country: FR (occurrence: FR)
  Receive Date: 20140407
  Receipt Date: 20140407
  Transmission Date: 20141212
  Serious: Yes (Death)
  Sender: FDA-Public Use
  Company Number: FR-B.I. PHARMACEUTICALS,INC./RIDGEFIELD-2014-BI-14407FF

PATIENT
  Age: 87 Year
  Sex: Male

DRUGS (9)
  1. PRADAXA [Suspect]
     Indication: ATRIAL FIBRILLATION
     Dosage: 220 MG
     Route: 048
     Dates: end: 20140223
  2. AUGMENTIN [Concomitant]
     Route: 065
     Dates: start: 20140220
  3. FORTZAAR 100MG/25MG [Concomitant]
     Route: 065
  4. CRESTOR [Concomitant]
     Route: 065
  5. KARDEGIC 75MG [Concomitant]
     Route: 065
  6. CARDENSIEL 10MG [Concomitant]
     Route: 065
  7. LASILIX 40MG [Concomitant]
     Route: 065
  8. SYMBICORT TURBUHALER 200/6 MCG PER DOSE [Concomitant]
     Route: 065
  9. TIMOPTOL [Concomitant]
     Route: 065

REACTIONS (2)
  - Rectal haemorrhage [Fatal]
  - Melaena [Fatal]
